FAERS Safety Report 6378808-5 (Version None)
Quarter: 2009Q3

REPORT INFORMATION
  Report Type: 
  Country: None (occurrence: None)
  Receive Date: 20090928
  Receipt Date: 20090527
  Transmission Date: 20100115
  Serious: No
  Sender: FDA-Public Use
  Company Number: US-BAYER-200922001NA

PATIENT
  Age: 37 Year
  Sex: Female
  Weight: 70 kg

DRUGS (1)
  1. MIRENA [Suspect]
     Indication: CONTRACEPTION
     Route: 015
     Dates: start: 20080909, end: 20090505

REACTIONS (10)
  - ABDOMINAL DISTENSION [None]
  - ACNE [None]
  - ARTHRALGIA [None]
  - COMPLICATION OF DEVICE INSERTION [None]
  - MENORRHAGIA [None]
  - MOOD ALTERED [None]
  - MUSCULOSKELETAL CHEST PAIN [None]
  - POST PROCEDURAL HAEMORRHAGE [None]
  - RESPIRATORY TRACT CONGESTION [None]
  - WEIGHT INCREASED [None]
